FAERS Safety Report 6539314-8 (Version None)
Quarter: 2010Q1

REPORT INFORMATION
  Report Type: 
  Country: None (occurrence: None)
  Receive Date: 20100115
  Receipt Date: 20100105
  Transmission Date: 20100710
  Serious: Yes (Hospitalization, Other)
  Sender: FDA-Public Use
  Company Number: JP-ABBOTT-05P-087-0316092-00

PATIENT
  Sex: Male

DRUGS (15)
  1. NORVIR [Suspect]
     Indication: HIV INFECTION
     Route: 048
     Dates: start: 20040728
  2. NORVIR [Suspect]
     Route: 048
     Dates: start: 20080714
  3. LAMIVUDINE [Suspect]
     Indication: HIV INFECTION
     Route: 048
     Dates: start: 20050425, end: 20050523
  4. LAMIVUDINE [Suspect]
     Route: 048
     Dates: start: 20050401, end: 20050424
  5. LAMIVUDINE [Suspect]
     Route: 048
     Dates: start: 19971229, end: 20050424
  6. STAVUDINE [Suspect]
     Indication: HIV INFECTION
     Route: 048
     Dates: start: 19981221, end: 20050424
  7. ATAZANAVIR SULFATE [Suspect]
     Indication: HIV INFECTION
     Route: 048
     Dates: start: 20040401, end: 20040727
  8. ATAZANAVIR SULFATE [Suspect]
     Route: 048
     Dates: start: 20040730, end: 20050424
  9. EFAVIRENZ [Suspect]
     Indication: HIV INFECTION
     Route: 048
     Dates: start: 20050425, end: 20080713
  10. TENOFOVIR [Suspect]
     Indication: HIV INFECTION
     Route: 048
     Dates: start: 20050425, end: 20050523
  11. COAGULATION FACTOR VIII [Concomitant]
     Indication: HAEMARTHROSIS
     Route: 042
     Dates: start: 20050401, end: 20050411
  12. TENOFOVIR DISOPROXIL FUMARATE [Concomitant]
     Indication: HIV INFECTION
     Route: 048
     Dates: start: 20050424, end: 20050523
  13. EMTRICITABINE AND TENOFOVIR DISOPROXIL FUMARATE [Concomitant]
     Indication: HIV INFECTION
     Route: 048
     Dates: start: 20050524
  14. OCTOCOG ALFA [Concomitant]
     Indication: HAEMOPHILIA
     Dosage: 1-3 TIMES PER WEEK
     Route: 055
     Dates: start: 20050412
  15. AMMONIUM GLYCYRRHIZINATE [Concomitant]
     Indication: DRUG USE FOR UNKNOWN INDICATION
     Dates: start: 20050401, end: 20050615

REACTIONS (16)
  - ABDOMINAL PAIN [None]
  - ASCITES [None]
  - EROSIVE DUODENITIS [None]
  - EROSIVE OESOPHAGITIS [None]
  - GASTRITIS [None]
  - GASTROENTERITIS [None]
  - HAEMATOCHEZIA [None]
  - HEPATIC CIRRHOSIS [None]
  - HEPATIC FUNCTION ABNORMAL [None]
  - HEPATITIS C [None]
  - HEPATOSPLENOMEGALY [None]
  - INTESTINAL MUCOSAL HYPERTROPHY [None]
  - LIPOATROPHY [None]
  - NAUSEA [None]
  - OESOPHAGEAL VARICES HAEMORRHAGE [None]
  - PYREXIA [None]
